FAERS Safety Report 23310660 (Version 3)
Quarter: 2024Q2

REPORT INFORMATION
  Report Type: Spontaneous
  Country: IT (occurrence: IT)
  Receive Date: 20231218
  Receipt Date: 20240402
  Transmission Date: 20240716
  Serious: Yes (Other)
  Sender: FDA-Public Use
  Company Number: None

PATIENT
  Age: 73 Year
  Sex: Female

DRUGS (9)
  1. ELIQUIS [Suspect]
     Active Substance: APIXABAN
     Indication: Deep vein thrombosis
     Dosage: ELIQUIS*60CPR RIV 5MG. DOSAGE SCHEDULE: 2 CPR PER DAY
     Route: 048
     Dates: start: 202205, end: 202303
  2. ELIQUIS [Suspect]
     Active Substance: APIXABAN
  3. BISOPROLOL [Concomitant]
     Active Substance: BISOPROLOL\BISOPROLOL FUMARATE
     Indication: Hypertension
     Dosage: CARDICOR 3,75MG 28CPR. DOSAGE SCHEDULE: 1 CPR PER DAY
     Route: 048
     Dates: start: 2023
  4. CHOLECALCIFEROL [Concomitant]
     Active Substance: CHOLECALCIFEROL
     Indication: Osteoporosis
     Dosage: DIBASE 25000IU/2.5ML OS 2C. DOSAGE SCHEDULE: 1 BOTTLE EVERY 15 DAYS
     Route: 048
     Dates: start: 202209
  5. ATORVASTATIN [Concomitant]
     Active Substance: ATORVASTATIN
     Indication: Hypercholesterolaemia
     Dosage: 10MG 30CPR. DOSAGE SCHEDULE: 1 CPR IN THE EVENING
     Route: 048
     Dates: start: 2022
  6. VALSARTAN [Concomitant]
     Active Substance: VALSARTAN
     Indication: Hypertension
     Dosage: TAREG 160MG 28CPR CALEND. DOSAGE SCHEDULE: 1 CPR PER DAY
     Route: 048
     Dates: start: 202209
  7. TERIPARATIDE [Concomitant]
     Active Substance: TERIPARATIDE
     Indication: Osteoporosis
     Dosage: MOVYMIA 20MCG/80MCL 2.4 1C. DOSAGE SCHEDULE: 20 MICROGRAMS PER DAY SUBCUTANEOUSLY
     Route: 058
  8. CANRENOATE POTASSIUM [Concomitant]
     Active Substance: CANRENOATE POTASSIUM
     Indication: Cardiac failure
     Dosage: LUVION 50MG CPR 40CPR. DOSAGE SCHEDULE: 1 CPR PER DAY
     Route: 048
     Dates: start: 202211
  9. LASIX [Concomitant]
     Active Substance: FUROSEMIDE
     Indication: Renal failure
     Dosage: 25MG 30CPR . DOSAGE SCHEDULE: 2 CPR PER DAY
     Route: 048
     Dates: start: 2016

REACTIONS (1)
  - Renal failure [Recovering/Resolving]

NARRATIVE: CASE EVENT DATE: 20221101
